FAERS Safety Report 5722518-1 (Version None)
Quarter: 2008Q2

REPORT INFORMATION
  Report Type: 
  Country: None (occurrence: None)
  Receive Date: 20080429
  Receipt Date: 20071012
  Transmission Date: 20081010
  Serious: No
  Sender: FDA-Public Use
  Company Number: US-ASTRAZENECA-2007UW23731

PATIENT
  Age: 62 Year
  Sex: Female
  Weight: 90.7 kg

DRUGS (6)
  1. NEXIUM [Suspect]
     Indication: GASTROOESOPHAGEAL REFLUX DISEASE
     Route: 048
     Dates: start: 20050101
  2. ZYRTEC [Concomitant]
  3. MULTI-VITAMIN [Concomitant]
  4. LISINOPRIL [Concomitant]
  5. GLUCOSAMINE [Concomitant]
  6. CHONDROITEN [Concomitant]

REACTIONS (3)
  - BONE PAIN [None]
  - MEDIAL TIBIAL STRESS SYNDROME [None]
  - TENDON RUPTURE [None]
